FAERS Safety Report 10941506 (Version 2)
Quarter: 2015Q2

REPORT INFORMATION
  Report Type: Spontaneous
  Country: US (occurrence: US)
  Receive Date: 20150322
  Receipt Date: 20150524
  Transmission Date: 20150821
  Serious: No
  Sender: FDA-Public Use
  Company Number: US-JNJFOC-20140911811

PATIENT
  Age: 62 Year
  Sex: Male
  Weight: 95.26 kg

DRUGS (3)
  1. LISINOPRIL. [Concomitant]
     Active Substance: LISINOPRIL
     Indication: HYPERTENSION
     Dosage: LONG TIME AGO
     Route: 048
  2. INVOKANA [Suspect]
     Active Substance: CANAGLIFLOZIN
     Indication: TYPE 2 DIABETES MELLITUS
     Route: 048
  3. ATORVASTATIN [Concomitant]
     Active Substance: ATORVASTATIN
     Route: 048
     Dates: start: 201408

REACTIONS (4)
  - Nocturia [Not Recovered/Not Resolved]
  - Dysuria [Not Recovered/Not Resolved]
  - Ejaculation disorder [Not Recovered/Not Resolved]
  - Pollakiuria [Not Recovered/Not Resolved]

NARRATIVE: CASE EVENT DATE: 201408
